FAERS Safety Report 6280282-4 (Version None)
Quarter: 2009Q3

REPORT INFORMATION
  Report Type: 
  Country: None (occurrence: None)
  Receive Date: 20090723
  Receipt Date: 20090715
  Transmission Date: 20100115
  Serious: Yes (Hospitalization)
  Sender: FDA-Public Use
  Company Number: FR-ASTRAZENECA-2009SE04483

PATIENT
  Age: 85 Year
  Sex: Female

DRUGS (3)
  1. CRESTOR [Suspect]
     Indication: DYSLIPIDAEMIA
     Route: 048
  2. MINISINTROM [Interacting]
     Indication: ATRIAL FIBRILLATION
     Route: 048
  3. FLECAINE LP [Concomitant]
     Indication: ATRIAL FIBRILLATION

REACTIONS (3)
  - CEREBRAL HAEMATOMA [None]
  - DRUG INTERACTION [None]
  - INTRAVENTRICULAR HAEMORRHAGE [None]
